FAERS Safety Report 19908574 (Version 1)
Quarter: 2021Q4

REPORT INFORMATION
  Report Type: Spontaneous
  Country: US (occurrence: US)
  Receive Date: 20211001
  Receipt Date: 20211001
  Transmission Date: 20220303
  Serious: No
  Sender: FDA-Public Use
  Company Number: US-AMARIN PHARMA, INC.-2020AMR000487

PATIENT
  Age: 70 Year
  Sex: Female
  Weight: 94.43 kg

DRUGS (1)
  1. VASCEPA [Suspect]
     Active Substance: ICOSAPENT ETHYL
     Indication: Blood triglycerides increased
     Route: 048
     Dates: start: 202007, end: 202007

REACTIONS (4)
  - Arthropod bite [Unknown]
  - Pruritus [Recovered/Resolved]
  - Erythema [Unknown]
  - Urticaria [Unknown]

NARRATIVE: CASE EVENT DATE: 20200701
